FAERS Safety Report 8962516 (Version 1)
Quarter: 2012Q4

REPORT INFORMATION
  Report Type: 
  Country: DE (occurrence: DE)
  Receive Date: 20121213
  Receipt Date: 20121213
  Transmission Date: 20130627
  Serious: Yes (Hospitalization)
  Sender: FDA-Public Use
  Company Number: DE-MYLANLABS-2012S1024948

PATIENT
  Age: 15 Year
  Sex: Male
  Weight: 70 kg

DRUGS (1)
  1. BACLOFEN [Suspect]
     Indication: TOXICITY TO VARIOUS AGENTS
     Dosage: 90 pills of 25mg each, potential dosage 2250mg
     Route: 048

REACTIONS (9)
  - Overdose [Recovering/Resolving]
  - Toxicity to various agents [Recovering/Resolving]
  - Coma [Recovering/Resolving]
  - Grand mal convulsion [Recovering/Resolving]
  - Cyanosis [Unknown]
  - Bradypnoea [Unknown]
  - Status epilepticus [Recovered/Resolved]
  - Nausea [Unknown]
  - Aggression [Unknown]
